FAERS Safety Report 11033535 (Version 3)
Quarter: 2015Q2

REPORT INFORMATION
  Report Type: Spontaneous
  Country: US (occurrence: US)
  Receive Date: 20150415
  Receipt Date: 20150428
  Transmission Date: 20150821
  Serious: Yes (Other)
  Sender: FDA-Public Use
  Company Number: US-009507513-1504USA005122

PATIENT
  Sex: Female

DRUGS (3)
  1. NEXPLANON [Suspect]
     Active Substance: ETONOGESTREL
     Dosage: UNK, FIRST IMPLANT
     Route: 059
  2. NEXPLANON [Suspect]
     Active Substance: ETONOGESTREL
     Indication: CONTRACEPTION
     Dosage: UNK, 2ND OR 3RD IMPLANT
     Route: 059
  3. LAMICTAL [Concomitant]
     Active Substance: LAMOTRIGINE
     Indication: SCHIZOPHRENIA
     Dosage: UNK
     Dates: end: 20150402

REACTIONS (4)
  - Unintended pregnancy [Recovered/Resolved]
  - Treatment failure [Unknown]
  - Rectal haemorrhage [Unknown]
  - Ectopic pregnancy under hormonal contraception [Unknown]

NARRATIVE: CASE EVENT DATE: 20150330
